FAERS Safety Report 24298469 (Version 3)
Quarter: 2024Q4

REPORT INFORMATION
  Report Type: Spontaneous
  Country: JP (occurrence: JP)
  Receive Date: 20240909
  Receipt Date: 20241114
  Transmission Date: 20250115
  Serious: Yes (Other)
  Sender: ROCHE
  Company Number: JP-CHUGAI-2024011225

PATIENT
  Age: 71 Year
  Sex: Male

DRUGS (3)
  1. VABYSMO [Suspect]
     Active Substance: FARICIMAB-SVOA
     Indication: Diabetic retinal oedema
     Dosage: STRENGTH: 120 MG/ML
     Route: 050
     Dates: start: 20231130, end: 20240215
  2. GATIFLOXACIN SESQUIHYDRATE [Concomitant]
     Active Substance: GATIFLOXACIN
     Route: 031
     Dates: start: 20231127, end: 20231203
  3. GATIFLOXACIN SESQUIHYDRATE [Concomitant]
     Active Substance: GATIFLOXACIN
     Route: 031
     Dates: start: 20240212, end: 20240218

REACTIONS (5)
  - Retinal vascular occlusion [Unknown]
  - Anterior chamber inflammation [Recovered/Resolved]
  - Intraocular pressure increased [Recovered/Resolved]
  - Vitreous opacities [Recovered/Resolved]
  - Retinal occlusive vasculitis [Recovering/Resolving]

NARRATIVE: CASE EVENT DATE: 20240314
